FAERS Safety Report 9064012 (Version 1)
Quarter: 2013Q1

REPORT INFORMATION
  Report Type: Report from Study
  Country: US (occurrence: US)
  Receive Date: 20130130
  Receipt Date: 20130130
  Transmission Date: 20140127
  Serious: No
  Sender: FDA-Public Use
  Company Number: US-ABBOTT-12P-163-0934885-00

PATIENT
  Age: 46 None
  Sex: Female
  Weight: 90.8 kg

DRUGS (4)
  1. HUMIRA 40 MG/0.8 ML PEN [Suspect]
     Indication: PSORIASIS
     Route: 058
     Dates: end: 201205
  2. HUMIRA 40 MG/0.8 ML PEN [Suspect]
     Dosage: ONE WEEK AFTER 80MG, 1 PER 2 WEEKS
     Dates: start: 201205
  3. PROZAC [Concomitant]
     Indication: DEPRESSION
  4. WELLBUTRIN [Concomitant]
     Indication: DEPRESSION

REACTIONS (4)
  - Wrong technique in drug usage process [Recovered/Resolved]
  - Nausea [Recovered/Resolved]
  - Fatigue [Not Recovered/Not Resolved]
  - Somnolence [Not Recovered/Not Resolved]
